FAERS Safety Report 16781358 (Version 1)
Quarter: 2019Q3

REPORT INFORMATION
  Report Type: Spontaneous
  Country: PL (occurrence: PL)
  Receive Date: 20190906
  Receipt Date: 20190906
  Transmission Date: 20191005
  Serious: Yes (Hospitalization)
  Sender: FDA-Public Use
  Company Number: PHHY2019PL205055

PATIENT
  Age: 33 Year
  Sex: Female

DRUGS (3)
  1. OSELTAMIVIR [Suspect]
     Active Substance: OSELTAMIVIR
     Indication: PNEUMONIA
     Dosage: UNK
     Route: 065
  2. LEVOFLOXACIN. [Suspect]
     Active Substance: LEVOFLOXACIN
     Indication: PNEUMONIA
     Dosage: UNK
     Route: 065
  3. CEFTRIAXONE DISODIUM [Suspect]
     Active Substance: CEFTRIAXONE
     Indication: PNEUMONIA
     Dosage: UNK
     Route: 065

REACTIONS (11)
  - Respiratory failure [Recovered/Resolved]
  - Cardiac valve vegetation [Recovered/Resolved]
  - Fluid overload [Recovered/Resolved]
  - Chordae tendinae rupture [Recovered/Resolved]
  - Mitral valve incompetence [Recovered/Resolved]
  - Pyrexia [Recovered/Resolved]
  - Hypotonia [Recovered/Resolved]
  - Condition aggravated [Recovered/Resolved]
  - Oliguria [Recovered/Resolved]
  - Endocarditis [Recovered/Resolved]
  - Mitral valve prolapse [Recovered/Resolved]
